FAERS Safety Report 9287325 (Version 3)
Quarter: 2014Q3

REPORT INFORMATION
  Report Type: Spontaneous
  Country: US (occurrence: US)
  Receive Date: 20130514
  Receipt Date: 20140722
  Transmission Date: 20150326
  Serious: Yes (Hospitalization, Other)
  Sender: FDA-Public Use
  Company Number: US-009507513-1305USA004225

PATIENT
  Sex: Female
  Weight: 63.49 kg

DRUGS (2)
  1. NUVARING [Suspect]
     Active Substance: ETHINYL ESTRADIOL\ETONOGESTREL
     Indication: CONTRACEPTION
     Dosage: UNK
     Route: 067
     Dates: start: 20050626, end: 20070118
  2. PREDNISONE. [Concomitant]
     Active Substance: PREDNISONE
     Indication: SYSTEMIC LUPUS ERYTHEMATOSUS
     Dosage: 5 MG, QOD
     Dates: start: 1997

REACTIONS (16)
  - Abortion spontaneous [Unknown]
  - Sleep disorder [Unknown]
  - Skin disorder [Unknown]
  - Iron deficiency anaemia [Unknown]
  - Hypovitaminosis [Unknown]
  - Hypersensitivity [Unknown]
  - Blood disorder [Unknown]
  - Thrombosis [Unknown]
  - Pleurisy [Unknown]
  - Migraine [Unknown]
  - Obstructive airways disorder [Not Recovered/Not Resolved]
  - Menstrual disorder [Unknown]
  - Maternal exposure before pregnancy [Unknown]
  - Pulmonary embolism [Unknown]
  - Infection [Unknown]
  - Anxiety [Unknown]

NARRATIVE: CASE EVENT DATE: 2005
